FAERS Safety Report 7570787-8 (Version None)
Quarter: 2011Q2

REPORT INFORMATION
  Report Type: 
  Country: None (occurrence: None)
  Receive Date: 20110624
  Receipt Date: 20110520
  Transmission Date: 20111010
  Serious: No
  Sender: FDA-Public Use
  Company Number: US-ALLERGAN-1106961US

PATIENT
  Age: 44 Year
  Sex: Female

DRUGS (3)
  1. LATISSE [Suspect]
     Indication: EYELASH THICKENING
  2. LATISSE [Suspect]
     Indication: GROWTH OF EYELASHES
     Dosage: 1 GTT, QHS
     Route: 061
     Dates: start: 20110427
  3. LATISSE [Suspect]
     Indication: EYELASH DISCOLOURATION

REACTIONS (2)
  - MADAROSIS [None]
  - ERYTHEMA OF EYELID [None]
